FAERS Safety Report 19761471 (Version 1)
Quarter: 2021Q3

REPORT INFORMATION
  Report Type: Spontaneous
  Country: CA (occurrence: CA)
  Receive Date: 20210827
  Receipt Date: 20210827
  Transmission Date: 20211014
  Serious: Yes (Other)
  Sender: FDA-Public Use
  Company Number: CA-BAUSCH-BL-2021-028967

PATIENT
  Age: 84 Year
  Sex: Male
  Weight: 83 kg

DRUGS (4)
  1. METRONIDAZOLE. [Concomitant]
     Active Substance: METRONIDAZOLE
     Indication: EVIDENCE BASED TREATMENT
     Route: 048
  2. GENTAMICIN. [Suspect]
     Active Substance: GENTAMICIN
     Indication: OSTEOMYELITIS
     Route: 042
  3. RAMIPRIL. [Suspect]
     Active Substance: RAMIPRIL
     Indication: PRODUCT USED FOR UNKNOWN INDICATION
     Route: 048
  4. CEFTRIAXONE. [Concomitant]
     Active Substance: CEFTRIAXONE
     Indication: EVIDENCE BASED TREATMENT
     Route: 042

REACTIONS (2)
  - Acute kidney injury [Recovering/Resolving]
  - Condition aggravated [Recovering/Resolving]
